FAERS Safety Report 24133463 (Version 1)
Quarter: 2024Q3

REPORT INFORMATION
  Report Type: Spontaneous
  Country: US (occurrence: None)
  Receive Date: 20240724
  Receipt Date: 20240724
  Transmission Date: 20241017
  Serious: No
  Sender: Public
  Company Number: None

PATIENT
  Age: 55 Year
  Sex: Male

DRUGS (1)
  1. CABENUVA [Suspect]
     Active Substance: CABOTEGRAVIR\RILPIVIRINE
     Indication: HIV infection
     Dosage: 4 MG  MONTHLY INTRAMUSCULAR ?
     Route: 030
     Dates: start: 20230626, end: 20240711

REACTIONS (4)
  - Therapy cessation [None]
  - Injection site pain [None]
  - Gait inability [None]
  - Sciatica [None]

NARRATIVE: CASE EVENT DATE: 20240711
